FAERS Safety Report 10235966 (Version 1)
Quarter: 2014Q1

REPORT INFORMATION
  Report Type: Spontaneous
  Country: US (occurrence: None)
  Receive Date: 20140306
  Receipt Date: 20140306
  Transmission Date: 20141002
  Serious: Yes (Hospitalization)
  Sender: FDA-Public Use
  Company Number: 163-21880-13044236

PATIENT
  Age: 58 Year
  Sex: Male

DRUGS (8)
  1. REVLIMID [Suspect]
     Indication: PLASMA CELL MYELOMA
     Route: 048
     Dates: start: 20120926
  2. ATENOLOL (ATENOLOL) [Concomitant]
  3. DURAGESIC (FENTANYL) [Concomitant]
  4. ENDOCET (OXYCOCET) [Concomitant]
  5. RANITIDINE (RANITIDINE) [Concomitant]
  6. ULTRACET (ULTRACET) [Concomitant]
  7. VYTORIN (INEGY) [Concomitant]
  8. ZOFRAN (ONDANSETRON HYDROCHLORIDE) [Concomitant]

REACTIONS (2)
  - Dehydration [None]
  - Gastroenteritis viral [None]
